FAERS Safety Report 25584581 (Version 1)
Quarter: 2025Q3

REPORT INFORMATION
  Report Type: Spontaneous
  Country: US (occurrence: US)
  Receive Date: 20250721
  Receipt Date: 20250721
  Transmission Date: 20251021
  Serious: No
  Sender: MERCK SHARP & DOHME LLC
  Company Number: US-009507513-2300905

PATIENT
  Sex: Female
  Weight: 134.7 kg

DRUGS (26)
  1. SOTATERCEPT [Suspect]
     Active Substance: SOTATERCEPT
     Indication: Product used for unknown indication
     Route: 058
  2. SOTATERCEPT [Suspect]
     Active Substance: SOTATERCEPT
  3. SOTATERCEPT [Suspect]
     Active Substance: SOTATERCEPT
  4. SOTATERCEPT [Suspect]
     Active Substance: SOTATERCEPT
  5. REMODULIN [Suspect]
     Active Substance: TREPROSTINIL
     Indication: Pulmonary arterial hypertension
     Route: 058
     Dates: start: 20250423
  6. CLINDAMYCIN [Concomitant]
     Active Substance: CLINDAMYCIN
  7. ALBUTEROL\IPRATROPIUM [Concomitant]
     Active Substance: ALBUTEROL\IPRATROPIUM
  8. MONTELUKAST SODIUM [Concomitant]
     Active Substance: MONTELUKAST SODIUM
  9. LANTUS [Concomitant]
     Active Substance: INSULIN GLARGINE
  10. OXYGEN [Concomitant]
     Active Substance: OXYGEN
  11. LIDOCAINE HYDROCHLORIDE [Concomitant]
     Active Substance: LIDOCAINE HYDROCHLORIDE
  12. TYLENOL EXTRA STRENGTH [Concomitant]
     Active Substance: ACETAMINOPHEN
  13. AMITRIPTYLINE [Concomitant]
     Active Substance: AMITRIPTYLINE
  14. GABAPENTIN [Concomitant]
     Active Substance: GABAPENTIN
  15. POLOXAMER [Concomitant]
     Active Substance: POLOXAMER
  16. OZEMPIC [Concomitant]
     Active Substance: SEMAGLUTIDE
  17. SODIUM CHLORIDE [Concomitant]
     Active Substance: SODIUM CHLORIDE
  18. PREDNISOLONE [Concomitant]
     Active Substance: PREDNISOLONE
  19. LASIX [Concomitant]
     Active Substance: FUROSEMIDE
  20. KETAMINE HYDROCHLORIDE [Concomitant]
     Active Substance: KETAMINE HYDROCHLORIDE
  21. LECITHIN [Concomitant]
     Active Substance: LECITHIN
  22. SILDENAFIL CITRATE [Concomitant]
     Active Substance: SILDENAFIL CITRATE
  23. FLONASE ALLERGY RELIEF [Concomitant]
     Active Substance: FLUTICASONE PROPIONATE
  24. MUCINEX [Concomitant]
     Active Substance: GUAIFENESIN
  25. CLONIDINE [Concomitant]
     Active Substance: CLONIDINE
  26. KETOPROFEN [Concomitant]
     Active Substance: KETOPROFEN

REACTIONS (5)
  - Infusion site discharge [Unknown]
  - Infusion site mass [Unknown]
  - Purulent discharge [Unknown]
  - Device maintenance issue [Unknown]
  - Infusion site erythema [Unknown]

NARRATIVE: CASE EVENT DATE: 20250101
